FAERS Safety Report 11052334 (Version 2)
Quarter: 2016Q2

REPORT INFORMATION
  Report Type: Spontaneous
  Country: US (occurrence: US)
  Receive Date: 20150421
  Receipt Date: 20160627
  Transmission Date: 20160815
  Serious: Yes (Hospitalization, Disabling, Other)
  Sender: FDA-Public Use
  Company Number: US-009507513-1106USA00665

PATIENT
  Sex: Female
  Weight: 88.45 kg

DRUGS (4)
  1. FOSAMAX [Suspect]
     Active Substance: ALENDRONATE SODIUM
     Indication: OSTEOPENIA
  2. ALENDRONATE SODIUM. [Suspect]
     Active Substance: ALENDRONATE SODIUM
     Indication: OSTEOPOROSIS
     Dosage: 70 MG, QW
     Route: 048
     Dates: start: 200807, end: 201001
  3. ALENDRONATE SODIUM. [Suspect]
     Active Substance: ALENDRONATE SODIUM
     Indication: OSTEOPENIA
  4. FOSAMAX [Suspect]
     Active Substance: ALENDRONATE SODIUM
     Indication: OSTEOPOROSIS
     Dosage: 70 MG, QW
     Route: 048
     Dates: start: 20020722, end: 201005

REACTIONS (31)
  - Low turnover osteopathy [Not Recovered/Not Resolved]
  - Radius fracture [Unknown]
  - Femur fracture [Not Recovered/Not Resolved]
  - Tinea infection [Unknown]
  - Epicondylitis [Unknown]
  - Memory impairment [Unknown]
  - Red blood cell count decreased [Unknown]
  - Laceration [Unknown]
  - Liver disorder [Unknown]
  - Arthropathy [Unknown]
  - Nasal septum deviation [Unknown]
  - Fall [Unknown]
  - Deafness neurosensory [Recovering/Resolving]
  - Meningioma [Unknown]
  - Nausea [Unknown]
  - Intramedullary rod insertion [Unknown]
  - Arteriosclerosis [Unknown]
  - Osteoporosis [Not Recovered/Not Resolved]
  - Deafness [Unknown]
  - Fracture nonunion [Unknown]
  - Eustachian tube dysfunction [Recovering/Resolving]
  - Blood cholesterol increased [Not Recovered/Not Resolved]
  - Abdominal pain upper [Unknown]
  - Stress fracture [Not Recovered/Not Resolved]
  - Dysuria [Unknown]
  - Insomnia [Unknown]
  - Migraine [Unknown]
  - Osteoarthritis [Unknown]
  - Metatarsalgia [Unknown]
  - Pollakiuria [Unknown]
  - Limb discomfort [Unknown]

NARRATIVE: CASE EVENT DATE: 20020805
